FAERS Safety Report 23680548 (Version 1)
Quarter: 2024Q1

REPORT INFORMATION
  Report Type: Spontaneous
  Country: CN (occurrence: CN)
  Receive Date: 20240328
  Receipt Date: 20240328
  Transmission Date: 20240409
  Serious: Yes (Other)
  Sender: FDA-Public Use
  Company Number: CN-BEIGENE-BGN-2024-004505

PATIENT

DRUGS (2)
  1. TISLELIZUMAB [Suspect]
     Active Substance: TISLELIZUMAB
     Indication: Hepatic cancer
     Dosage: 200 MILLIGRAM, D1 Q3WK
     Route: 041
     Dates: start: 20240129
  2. TISLELIZUMAB [Suspect]
     Active Substance: TISLELIZUMAB
     Dosage: UNK
     Dates: start: 20240224

REACTIONS (1)
  - Immune-mediated hepatic disorder [Not Recovered/Not Resolved]

NARRATIVE: CASE EVENT DATE: 20240223
